FAERS Safety Report 9665539 (Version 3)
Quarter: 2013Q4

REPORT INFORMATION
  Report Type: Spontaneous
  Country: US (occurrence: US)
  Receive Date: 20131104
  Receipt Date: 20131108
  Transmission Date: 20140711
  Serious: No
  Sender: FDA-Public Use
  Company Number: US-PFIZER INC-2013303194

PATIENT
  Age: 62 Year
  Sex: Female
  Weight: 68.03 kg

DRUGS (7)
  1. LYRICA [Suspect]
     Indication: FIBROMYALGIA
     Dosage: 150 MG, 1X/DAY
     Route: 048
     Dates: end: 201310
  2. ENBREL ^WYETH PHARMA^ [Concomitant]
     Indication: PSORIATIC ARTHROPATHY
     Dosage: UNK, WEEKLY
  3. ARTHROTEC [Concomitant]
     Dosage: 0.2/75 MG/MG, 1X/DAY
  4. FLEXERIL [Concomitant]
     Dosage: 10 MG, 3X/DAY
  5. ULTRAM [Concomitant]
     Dosage: 200 MG, 1X/DAY
  6. SIMVASTATIN [Concomitant]
     Indication: BLOOD CHOLESTEROL INCREASED
     Dosage: 20 MG, 1X/DAY
  7. TRAZODONE [Concomitant]
     Dosage: 100 MG, 1X/DAY

REACTIONS (4)
  - Drug withdrawal syndrome [Not Recovered/Not Resolved]
  - Musculoskeletal discomfort [Not Recovered/Not Resolved]
  - Muscle contracture [Not Recovered/Not Resolved]
  - Neuralgia [Not Recovered/Not Resolved]
